FAERS Safety Report 6725971-X (Version None)
Quarter: 2010Q2

REPORT INFORMATION
  Report Type: 
  Country: None (occurrence: None)
  Receive Date: 20100514
  Receipt Date: 20080711
  Transmission Date: 20101027
  Serious: Yes (Other)
  Sender: FDA-Public Use
  Company Number: PHHY2008BR36963

PATIENT
  Sex: Female
  Weight: 54 kg

DRUGS (5)
  1. DIOVAN [Suspect]
     Indication: HYPERTENSION
     Dosage: 1 DF, UNK
     Route: 048
     Dates: start: 20080708
  2. MODURETIC 5-50 [Concomitant]
     Indication: BLOOD PRESSURE
     Dosage: 1 DF, UNK
     Route: 048
     Dates: start: 20080708
  3. CARDIZEM [Concomitant]
     Indication: ARRHYTHMIA
     Dosage: 1 DF, BID
     Route: 048
     Dates: start: 20080708
  4. FRONTAL [Concomitant]
     Indication: ANXIETY
     Dosage: 1 DF, AT NIGHT
     Dates: start: 20000101
  5. FISIOGEN [Concomitant]
     Indication: MENOPAUSE
     Dosage: 1 DF, UNK
     Route: 048
     Dates: start: 20050101

REACTIONS (6)
  - AGITATION [None]
  - ARRHYTHMIA [None]
  - ERYTHEMA [None]
  - HEART RATE INCREASED [None]
  - HYPERTENSION [None]
  - TREMOR [None]
